FAERS Safety Report 5125336-0 (Version None)
Quarter: 2006Q4

REPORT INFORMATION
  Report Type: 
  Country: None (occurrence: None)
  Receive Date: 20061006
  Receipt Date: 20060926
  Transmission Date: 20070319
  Serious: Yes (Other)
  Sender: FDA-Public Use
  Company Number: 2005149006

PATIENT
  Age: 86 Year
  Sex: Male
  Weight: 74.8435 kg

DRUGS (17)
  1. TIKOSYN [Suspect]
     Indication: HEART RATE
     Dosage: 0.25 MG (0.125 MG, 2 IN 1 D), ORAL
     Route: 048
     Dates: start: 20050401
  2. POTASSIUM (POTASSIUM) [Suspect]
  3. PROTONIX [Concomitant]
  4. CALCIUM (CALCIUM) [Concomitant]
  5. FOLIC ACID [Concomitant]
  6. MULTI-VITAMINS [Concomitant]
  7. LISINOPRIL [Concomitant]
  8. FUROSEMIDE [Concomitant]
  9. ALLEGRA [Concomitant]
  10. SEROQUEL [Concomitant]
  11. SPIRIVA [Concomitant]
  12. UROXATRAL [Concomitant]
  13. ZOLOFT [Concomitant]
  14. SPIRONOLACTONE [Concomitant]
  15. CLONAZEPAM [Concomitant]
  16. AMBIEN [Concomitant]
  17. ACETAMINOPHEN [Concomitant]

REACTIONS (5)
  - ASTHENIA [None]
  - BLOOD POTASSIUM INCREASED [None]
  - BLOOD PRESSURE DECREASED [None]
  - DIZZINESS [None]
  - HEADACHE [None]
